FAERS Safety Report 5397490-7 (Version None)
Quarter: 2007Q3

REPORT INFORMATION
  Report Type: 
  Country: None (occurrence: None)
  Receive Date: 20070726
  Receipt Date: 20070516
  Transmission Date: 20080115
  Serious: Yes (Hospitalization)
  Sender: FDA-Public Use
  Company Number: SG-AMGEN-US224999

PATIENT
  Sex: Female

DRUGS (2)
  1. NEUPOGEN [Suspect]
     Indication: CHEMOTHERAPY
     Route: 058
  2. NEULASTIM [Concomitant]
     Indication: CHEMOTHERAPY
     Route: 058

REACTIONS (2)
  - ASTHENIA [None]
  - DIZZINESS [None]
